FAERS Safety Report 7479495-5 (Version None)
Quarter: 2011Q2

REPORT INFORMATION
  Report Type: 
  Country: None (occurrence: None)
  Receive Date: 20110513
  Receipt Date: 20110502
  Transmission Date: 20111010
  Serious: Yes (Hospitalization)
  Sender: FDA-Public Use
  Company Number: PHHY2011US27838

PATIENT
  Sex: Male

DRUGS (4)
  1. AMBIEN [Concomitant]
  2. ANTIEPILEPTICS (SEIZURE MEDICATION-UNKNOWN) [Concomitant]
  3. EXTAVIA [Suspect]
     Indication: MULTIPLE SCLEROSIS
     Dosage: 0.25 MG, QOD
     Route: 058
     Dates: start: 20101115
  4. OXYCONTIN [Concomitant]

REACTIONS (7)
  - GAIT DISTURBANCE [None]
  - CONVULSION [None]
  - ASTHENIA [None]
  - VISION BLURRED [None]
  - TREMOR [None]
  - DRUG INEFFECTIVE [None]
  - DYSPHAGIA [None]
